FAERS Safety Report 7432033-5 (Version None)
Quarter: 2011Q2

REPORT INFORMATION
  Report Type: 
  Country: None (occurrence: None)
  Receive Date: 20110422
  Receipt Date: 20110415
  Transmission Date: 20111010
  Serious: Yes (Other)
  Sender: FDA-Public Use
  Company Number: AU-BRISTOL-MYERS SQUIBB COMPANY-15685126

PATIENT

DRUGS (2)
  1. COUMADIN [Suspect]
     Dosage: TABS
  2. COVERSYL [Suspect]

REACTIONS (2)
  - DRUG DISPENSING ERROR [None]
  - HAEMATURIA [None]
